FAERS Safety Report 6122034-1 (Version None)
Quarter: 2009Q1

REPORT INFORMATION
  Report Type: 
  Country: None (occurrence: None)
  Receive Date: 20090316
  Receipt Date: 20090305
  Transmission Date: 20090719
  Serious: Yes (Other)
  Sender: FDA-Public Use
  Company Number: IMP_04275_2009

PATIENT
  Age: 62 Year
  Sex: Male

DRUGS (4)
  1. CARBIDOPA W/ENTACAPONE W/LEVODOPA [Suspect]
     Indication: PARKINSON'S DISEASE
     Dosage: 600/150/1200 MG DAILY ORAL
     Route: 048
     Dates: start: 20070101
  2. BENSERAZIDE HYDROCHLORIDE W/LEVODOPA [Suspect]
  3. BORNAPRINE [Concomitant]
  4. CABERGOLINE [Concomitant]

REACTIONS (5)
  - DRUG EFFECT DECREASED [None]
  - DYSTONIA [None]
  - FREEZING PHENOMENON [None]
  - GAIT DISTURBANCE [None]
  - PLEUROTHOTONUS [None]
